FAERS Safety Report 15834805 (Version 1)
Quarter: 2019Q1

REPORT INFORMATION
  Report Type: Spontaneous
  Country: SA (occurrence: SA)
  Receive Date: 20190116
  Receipt Date: 20190116
  Transmission Date: 20190417
  Serious: Yes (Other)
  Sender: FDA-Public Use
  Company Number: SA-009507513-1901SAU005702

PATIENT
  Age: 63 Year
  Sex: Male

DRUGS (1)
  1. GLIPTEN (SITAGLIPTIN PHOSPHATE) [Suspect]
     Active Substance: SITAGLIPTIN PHOSPHATE
     Indication: DIABETES MELLITUS
     Dosage: 100 MILLIGRAM, ONCE
     Route: 048

REACTIONS (1)
  - Urinary retention [Recovered/Resolved]
